FAERS Safety Report 22188266 (Version 2)
Quarter: 2023Q2

REPORT INFORMATION
  Report Type: Spontaneous
  Country: PL (occurrence: PL)
  Receive Date: 20230408
  Receipt Date: 20230422
  Transmission Date: 20230721
  Serious: Yes (Other)
  Sender: FDA-Public Use
  Company Number: PL-AMGEN-POLSP2023056485

PATIENT
  Sex: Male

DRUGS (2)
  1. ARANESP [Suspect]
     Active Substance: DARBEPOETIN ALFA
     Indication: Product used for unknown indication
     Dosage: UNK
     Route: 065
  2. EPOETIN BETA [Concomitant]
     Active Substance: ERYTHROPOIETIN

REACTIONS (4)
  - Peritoneal dialysis [Unknown]
  - Transfusion [Unknown]
  - Aplasia pure red cell [Unknown]
  - Drug ineffective [Unknown]
